FAERS Safety Report 13231868 (Version 1)
Quarter: 2017Q1

REPORT INFORMATION
  Report Type: Spontaneous
  Country: US (occurrence: US)
  Receive Date: 20170214
  Receipt Date: 20170214
  Transmission Date: 20170428
  Serious: No
  Sender: FDA-Public Use
  Company Number: US-HERITAGE PHARMACEUTICALS-2016HTG00012

PATIENT
  Age: 69 Year
  Sex: Female

DRUGS (2)
  1. DEPAKOTE [Concomitant]
     Active Substance: DIVALPROEX SODIUM
     Dosage: UNK
  2. VENLAFAXINE HYDROCHLORIDE. [Suspect]
     Active Substance: VENLAFAXINE HYDROCHLORIDE
     Dosage: UNK

REACTIONS (8)
  - Nasopharyngitis [Unknown]
  - Dizziness [Unknown]
  - Visual acuity reduced [Unknown]
  - Gastric disorder [Unknown]
  - Feeling of body temperature change [Unknown]
  - Stress [Unknown]
  - Hyperhidrosis [Unknown]
  - Viral infection [Unknown]
